FAERS Safety Report 13739796 (Version 1)
Quarter: 2017Q3

REPORT INFORMATION
  Report Type: Spontaneous
  Country: JP (occurrence: JP)
  Receive Date: 20170711
  Receipt Date: 20170711
  Transmission Date: 20171127
  Serious: Yes (Hospitalization)
  Sender: FDA-Public Use
  Company Number: PHHY2009JP09935

PATIENT
  Age: 80 Year
  Sex: Male

DRUGS (1)
  1. MIKELAN LA 2% [Suspect]
     Active Substance: CARTEOLOL HYDROCHLORIDE
     Indication: OPEN ANGLE GLAUCOMA
     Dosage: 3 TIMES A DAY
     Route: 047

REACTIONS (4)
  - Overdose [Unknown]
  - Mydriasis [Unknown]
  - Cerebral infarction [Unknown]
  - Drug dispensing error [Unknown]

NARRATIVE: CASE EVENT DATE: 20090310
